FAERS Safety Report 19819193 (Version 1)
Quarter: 2021Q3

REPORT INFORMATION
  Report Type: Spontaneous
  Country: US (occurrence: US)
  Receive Date: 20210913
  Receipt Date: 20210913
  Transmission Date: 20211014
  Serious: No
  Sender: FDA-Public Use
  Company Number: US-SA-2021SA298359

PATIENT
  Age: 16 Year
  Sex: Male

DRUGS (8)
  1. NORDITROPIN [Concomitant]
     Active Substance: SOMATROPIN
  2. DUPIXENT [Suspect]
     Active Substance: DUPILUMAB
     Indication: ASTHMA
     Dosage: 300 MG, QOW
     Route: 058
  3. RISPERDAL [Concomitant]
     Active Substance: RISPERIDONE
     Dosage: 1MG
  4. GUANFACINE. [Concomitant]
     Active Substance: GUANFACINE
     Dosage: 15MG
  5. LANSOPRAZOLE. [Concomitant]
     Active Substance: LANSOPRAZOLE
  6. FOCALIN [Concomitant]
     Active Substance: DEXMETHYLPHENIDATE HYDROCHLORIDE
  7. SERTRALINE HCL [Concomitant]
     Active Substance: SERTRALINE HYDROCHLORIDE
     Dosage: 100MG
  8. TRAZODONE HYDROCHLORIDE. [Concomitant]
     Active Substance: TRAZODONE HYDROCHLORIDE
     Dosage: 50MG

REACTIONS (1)
  - Illness [Unknown]
